FAERS Safety Report 7780807-3 (Version None)
Quarter: 2011Q3

REPORT INFORMATION
  Report Type: 
  Country: None (occurrence: None)
  Receive Date: 20110927
  Receipt Date: 20110921
  Transmission Date: 20111222
  Serious: No
  Sender: FDA-Public Use
  Company Number: US-PFIZER INC-2011225315

PATIENT
  Sex: Female
  Weight: 90.7 kg

DRUGS (2)
  1. DILANTIN [Suspect]
     Indication: CONVULSION
     Dosage: 400 MG,DAILY
  2. KLONOPIN [Concomitant]
     Indication: CONVULSION
     Dosage: 0.5 MG, 2X/DAY

REACTIONS (2)
  - VITAMIN B12 DEFICIENCY [None]
  - MALABSORPTION [None]
